FAERS Safety Report 13494467 (Version 2)
Quarter: 2017Q2

REPORT INFORMATION
  Report Type: Spontaneous
  Country: IN (occurrence: IN)
  Receive Date: 20170428
  Receipt Date: 20170428
  Transmission Date: 20170830
  Serious: Yes (Hospitalization)
  Sender: FDA-Public Use
  Company Number: IN-CIPLA LTD.-2017IN07477

PATIENT

DRUGS (3)
  1. AMLODIPINE [Suspect]
     Active Substance: AMLODIPINE BESYLATE
     Dosage: 10 MG/DAY
     Route: 065
  2. AMLODIPINE [Suspect]
     Active Substance: AMLODIPINE BESYLATE
     Indication: HYPERTENSION
     Dosage: 5 MG/DAY
     Route: 065
  3. PRASOZIN [Suspect]
     Active Substance: PRAZOSIN
     Indication: HYPERTENSION
     Dosage: 5 MG/DAY
     Route: 065

REACTIONS (5)
  - Albuminuria [Unknown]
  - Treatment noncompliance [Unknown]
  - Leukocytosis [Unknown]
  - Posterior reversible encephalopathy syndrome [Recovered/Resolved]
  - Retinopathy hypertensive [Unknown]
